FAERS Safety Report 11117456 (Version 1)
Quarter: 2015Q2

REPORT INFORMATION
  Report Type: Spontaneous
  Country: HK (occurrence: HK)
  Receive Date: 20150516
  Receipt Date: 20150516
  Transmission Date: 20150821
  Serious: Yes (Other)
  Sender: FDA-Public Use
  Company Number: HK-AUROBINDO-AUR-APL-2015-04279

PATIENT
  Age: 57 Year
  Sex: Male

DRUGS (1)
  1. PIPERACILLIN+TAZOBACTAM 2.25G [Suspect]
     Active Substance: PIPERACILLIN SODIUM\TAZOBACTAM SODIUM
     Indication: LEGIONELLA INFECTION
     Dosage: 2.25 G, EVERY 8 H
     Route: 065

REACTIONS (3)
  - Blood creatinine increased [Unknown]
  - Myoclonus [Recovered/Resolved]
  - Blood urea increased [Unknown]
